FAERS Safety Report 12854519 (Version 1)
Quarter: 2016Q4

REPORT INFORMATION
  Report Type: Spontaneous
  Country: US (occurrence: US)
  Receive Date: 20161017
  Receipt Date: 20161017
  Transmission Date: 20170207
  Serious: No
  Sender: FDA-Public Use
  Company Number: US-BAYER-2016-199154

PATIENT
  Sex: Male
  Weight: 61.22 kg

DRUGS (1)
  1. ALEVE [Suspect]
     Active Substance: NAPROXEN SODIUM
     Indication: PAIN
     Dosage: 1, 2 TIMES A DAY
     Route: 048
     Dates: end: 20161013

REACTIONS (1)
  - Drug ineffective [Unknown]
